FAERS Safety Report 6255326-6 (Version None)
Quarter: 2009Q3

REPORT INFORMATION
  Report Type: 
  Country: None (occurrence: None)
  Receive Date: 20090702
  Receipt Date: 20090615
  Transmission Date: 20100115
  Serious: Yes (Other)
  Sender: FDA-Public Use
  Company Number: GB-JNJFOC-20090605961

PATIENT
  Sex: Female
  Weight: 2.58 kg

DRUGS (5)
  1. RISPERDAL CONSTA [Suspect]
     Indication: DRUG EXPOSURE DURING PREGNANCY
     Route: 064
  2. RISPERDAL [Suspect]
     Indication: DRUG EXPOSURE DURING PREGNANCY
     Route: 064
  3. DEPAKOTE [Concomitant]
     Route: 065
  4. LORAZEPAM [Concomitant]
     Route: 048
  5. ZOPICLONE [Concomitant]
     Route: 048

REACTIONS (1)
  - FOETAL GROWTH RETARDATION [None]
